FAERS Safety Report 6785704-8 (Version None)
Quarter: 2010Q2

REPORT INFORMATION
  Report Type: 
  Country: None (occurrence: None)
  Receive Date: 20100621
  Receipt Date: 20100621
  Transmission Date: 20101027
  Serious: Yes (Disabling)
  Sender: FDA-Public Use
  Company Number: None

PATIENT
  Age: 30 Year
  Sex: Male
  Weight: 81.6475 kg

DRUGS (2)
  1. LAMOTRIGINE [Suspect]
     Indication: BIPOLAR I DISORDER
     Dosage: 200 1 PO
     Route: 048
     Dates: start: 20100303, end: 20100310
  2. LAMOTRIGINE [Suspect]
     Indication: BIPOLAR I DISORDER
     Dosage: 200 1 PO
     Route: 048
     Dates: start: 20100328, end: 20100402

REACTIONS (2)
  - DEPRESSION [None]
  - PRODUCT SUBSTITUTION ISSUE [None]
